FAERS Safety Report 9695943 (Version 3)
Quarter: 2014Q1

REPORT INFORMATION
  Report Type: Report from Study
  Country: DE (occurrence: DE)
  Receive Date: 20131119
  Receipt Date: 20140121
  Transmission Date: 20141002
  Serious: Yes (Hospitalization)
  Sender: FDA-Public Use
  Company Number: DE-INCYTE CORPORATION-2013IN000377

PATIENT
  Sex: Female
  Weight: 60 kg

DRUGS (8)
  1. INCB018424 [Suspect]
     Indication: MYELOFIBROSIS
     Dosage: 20 MG X 2 DF PER DAY
     Route: 048
     Dates: start: 20121031, end: 20121125
  2. INCB018424 [Suspect]
     Dosage: 20 MG X 2 DF PER DAY
     Route: 048
     Dates: start: 20121201, end: 20130520
  3. INCB018424 [Suspect]
     Dosage: 20 MG X 2 DF PER DAY
     Route: 048
     Dates: start: 20130526, end: 20130826
  4. INCB018424 [Suspect]
     Dosage: 20 X 1 DF PER DAY
     Route: 048
     Dates: start: 20130827
  5. NOVAMINSULFON [Concomitant]
     Dosage: UNK
     Dates: start: 20121017
  6. OXYGESIC [Concomitant]
     Dosage: UNK
     Dates: start: 20121205
  7. HALOPERIDOL [Concomitant]
     Dosage: UNK
     Dates: start: 20121205
  8. VERGENTAN [Concomitant]
     Dosage: UNK
     Route: 048
     Dates: start: 20130521, end: 20130525

REACTIONS (1)
  - Hypertensive crisis [Recovered/Resolved]
